FAERS Safety Report 20780044 (Version 1)
Quarter: 2022Q2

REPORT INFORMATION
  Report Type: Spontaneous
  Country: US (occurrence: US)
  Receive Date: 20220503
  Receipt Date: 20220503
  Transmission Date: 20220721
  Serious: No
  Sender: FDA-Public Use
  Company Number: US-SUN PHARMACEUTICAL INDUSTRIES LTD-2021R1-310890

PATIENT
  Age: 17 Year
  Sex: Male
  Weight: 77.098 kg

DRUGS (1)
  1. LORATADINE [Suspect]
     Active Substance: LORATADINE
     Dosage: 3 TABLETS
     Route: 065

REACTIONS (2)
  - Overdose [Unknown]
  - Expired product administered [Unknown]
